FAERS Safety Report 17252814 (Version 2)
Quarter: 2020Q1

REPORT INFORMATION
  Report Type: Spontaneous
  Country: CH (occurrence: CH)
  Receive Date: 20200109
  Receipt Date: 20200121
  Transmission Date: 20200409
  Serious: Yes (Hospitalization, Disabling, Other)
  Sender: FDA-Public Use
  Company Number: CH-AMERICAN REGENT INC-2019002893

PATIENT
  Age: 33 Year
  Sex: Female

DRUGS (1)
  1. FERINJECT [Suspect]
     Active Substance: FERRIC CARBOXYMALTOSE
     Indication: IRON DEFICIENCY
     Dosage: UNK, UNSPECIFIED DOSE IN AN UNSPECIFIED DILUTION AND GIVEN OVER AN UNSPECIFIED PERIOD OF TIME
     Dates: end: 2019

REACTIONS (7)
  - Osteoporosis [Recovering/Resolving]
  - Osteomalacia [Recovering/Resolving]
  - Vitamin D deficiency [Recovering/Resolving]
  - Fibroblast growth factor 23 increased [Unknown]
  - Hypophosphataemia [Recovering/Resolving]
  - Hypocalcaemia [Not Recovered/Not Resolved]
  - Stress fracture [Unknown]

NARRATIVE: CASE EVENT DATE: 2018
